FAERS Safety Report 8140681 (Version 6)
Quarter: 2013Q3

REPORT INFORMATION
  Report Type: Spontaneous
  Country: IN (occurrence: IN)
  Receive Date: 20110916
  Receipt Date: 20130718
  Transmission Date: 20140515
  Serious: Yes (Hospitalization, Other)
  Sender: FDA-Public Use
  Company Number: IN-SANOFI-AVENTIS-2011SA059702

PATIENT
  Age: 61 Year
  Sex: Male

DRUGS (10)
  1. CLOPIDOGREL BISULFATE [Suspect]
     Route: 048
  2. ASPIRIN [Suspect]
     Indication: PRODUCT USED FOR UNKNOWN INDICATION
     Route: 048
  3. GLIMEPIRIDE [Concomitant]
     Indication: TYPE 2 DIABETES MELLITUS
     Route: 065
     Dates: end: 201109
  4. METFORMIN [Concomitant]
     Indication: TYPE 2 DIABETES MELLITUS
     Route: 065
     Dates: end: 20110912
  5. ANGIOTENSIN II ANTAGONISTS [Concomitant]
  6. BETA BLOCKING AGENTS [Concomitant]
  7. HMG COA REDUCTASE INHIBITORS [Concomitant]
     Dates: start: 20110608
  8. DIURETICS [Concomitant]
  9. PLATELET AGGREGATION INHIBITORS [Concomitant]
  10. PLACEBO [Concomitant]

REACTIONS (1)
  - Anaemia [Recovered/Resolved]
